FAERS Safety Report 22960451 (Version 5)
Quarter: 2023Q4

REPORT INFORMATION
  Report Type: Report from Study
  Country: CA (occurrence: CA)
  Receive Date: 20230920
  Receipt Date: 20231212
  Transmission Date: 20240110
  Serious: Yes (Other)
  Sender: FDA-Public Use
  Company Number: CA-JNJFOC-20230562947

PATIENT
  Age: 35 Year
  Sex: Male

DRUGS (4)
  1. REMICADE [Suspect]
     Active Substance: INFLIXIMAB
     Indication: Crohn^s disease
     Dosage: ON 12-SEP-2023 THE PATIENT RECEIVED 5TH REMICADE INFUSION OF 250 MG. PARTIAL HARVEY-BRADSHAW COMPLET
     Route: 042
     Dates: start: 20230206
  2. REMICADE [Suspect]
     Active Substance: INFLIXIMAB
     Route: 041
     Dates: start: 20230228
  3. PREDNISONE [Concomitant]
     Active Substance: PREDNISONE
     Indication: Product used for unknown indication
     Route: 065
     Dates: end: 202304
  4. BENADRYL [Concomitant]
     Active Substance: DIPHENHYDRAMINE HYDROCHLORIDE
     Indication: Product used for unknown indication
     Route: 048

REACTIONS (13)
  - Periorbital swelling [Recovered/Resolved]
  - Pruritus [Recovering/Resolving]
  - Infusion related reaction [Recovered/Resolved]
  - Abdominal distension [Not Recovered/Not Resolved]
  - Flatulence [Not Recovered/Not Resolved]
  - Abdominal pain [Not Recovered/Not Resolved]
  - Decreased appetite [Unknown]
  - General physical health deterioration [Unknown]
  - Pelvic pain [Unknown]
  - Pain in extremity [Unknown]
  - Fatigue [Unknown]
  - Drug ineffective [Unknown]
  - Drug specific antibody present [Unknown]

NARRATIVE: CASE EVENT DATE: 20230101
